FAERS Safety Report 17375668 (Version 1)
Quarter: 2020Q1

REPORT INFORMATION
  Report Type: Spontaneous
  Country: US (occurrence: US)
  Receive Date: 20200206
  Receipt Date: 20200206
  Transmission Date: 20200409
  Serious: Yes (Death, Hospitalization, Other)
  Sender: FDA-Public Use
  Company Number: US-AMGEN-USASP2020017295

PATIENT

DRUGS (1)
  1. FILGRASTIM [Suspect]
     Active Substance: FILGRASTIM
     Indication: HAEMATOPOIETIC STEM CELL MOBILISATION
     Dosage: UNK
     Route: 065

REACTIONS (8)
  - Platelet count abnormal [Unknown]
  - Death [Fatal]
  - Unevaluable event [Unknown]
  - Disease progression [Unknown]
  - Neutrophil count abnormal [Unknown]
  - Therapeutic product effect incomplete [Unknown]
  - Packed red blood cell transfusion [Unknown]
  - Platelet transfusion [Unknown]
